FAERS Safety Report 6925063-0 (Version None)
Quarter: 2010Q3

REPORT INFORMATION
  Report Type: 
  Country: None (occurrence: None)
  Receive Date: 20100810
  Receipt Date: 20100802
  Transmission Date: 20110219
  Serious: Yes (Other)
  Sender: FDA-Public Use
  Company Number: DSA_43630_2010

PATIENT
  Sex: Male

DRUGS (1)
  1. XENAZINE [Suspect]
     Indication: DYSTONIA
     Dosage: 25 MG TID ORAL (DF ORAL)
     Route: 048
     Dates: start: 20100113, end: 20100801

REACTIONS (5)
  - DEPRESSION [None]
  - IRRITABILITY [None]
  - MIDDLE INSOMNIA [None]
  - RASH [None]
  - SUICIDAL IDEATION [None]
